FAERS Safety Report 7718461-9 (Version None)
Quarter: 2011Q3

REPORT INFORMATION
  Report Type: 
  Country: None (occurrence: None)
  Receive Date: 20110830
  Receipt Date: 20110823
  Transmission Date: 20111222
  Serious: Yes (Death, Disabling, Other)
  Sender: FDA-Public Use
  Company Number: PHHY2011JP31391

PATIENT
  Sex: Female
  Weight: 50 kg

DRUGS (16)
  1. DILTIAZEM HCL [Concomitant]
     Dosage: 200 MG, UNK
     Route: 048
     Dates: end: 20100921
  2. DEPAS [Concomitant]
     Dosage: 1 MG, UNK
     Route: 048
     Dates: end: 20100921
  3. SIGMART [Concomitant]
     Dosage: 10 MG, UNK
     Route: 048
     Dates: start: 20100813, end: 20100922
  4. LASIX [Concomitant]
     Dosage: 40 MG, UNK
     Dates: start: 20100822
  5. MICARDIS [Concomitant]
     Dosage: 40 MG, UNK
     Route: 048
     Dates: end: 20100922
  6. ANPEC [Concomitant]
     Indication: RENAL CELL CARCINOMA
     Dosage: 10 MG, UNK
     Route: 048
     Dates: start: 20100703, end: 20100922
  7. ISOSORBIDE DINITRATE [Concomitant]
     Dosage: 5 MG, UNK
     Route: 048
     Dates: start: 20100813, end: 20100922
  8. AFINITOR [Suspect]
     Indication: RENAL CELL CARCINOMA
     Dosage: 5 MG, DAILY
     Route: 048
     Dates: start: 20100602, end: 20100822
  9. NITOROL R [Concomitant]
     Dosage: 80 MG, UNK
     Route: 048
     Dates: end: 20100921
  10. LANSOPRAZOLE [Concomitant]
     Dosage: 15 MG, UNK
     Route: 048
     Dates: end: 20100922
  11. MAGMITT [Concomitant]
     Dosage: 1980 MG, UNK
     Route: 048
     Dates: start: 20100428, end: 20100922
  12. ZOLPIDEM [Concomitant]
     Dosage: 10 MG, UNK
     Route: 048
     Dates: start: 20100322, end: 20100922
  13. SINGULAIR [Concomitant]
     Dosage: 10 MG, UNK
     Route: 048
     Dates: start: 20080424, end: 20100922
  14. PLAVIX [Concomitant]
     Dosage: 75 MG, UNK
     Route: 048
     Dates: end: 20100922
  15. DEPROMEL [Concomitant]
     Dosage: 100 MG, UNK
     Route: 048
     Dates: end: 20100910
  16. SOLDACTONE [Concomitant]
     Dosage: 100 MG, UNK
     Dates: start: 20100825

REACTIONS (6)
  - NEOPLASM PROGRESSION [None]
  - NEOPLASM MALIGNANT [None]
  - BLOOD CREATININE INCREASED [None]
  - PLEURAL EFFUSION [None]
  - DYSPNOEA [None]
  - BLOOD URIC ACID INCREASED [None]
